FAERS Safety Report 25905964 (Version 1)
Quarter: 2025Q4

REPORT INFORMATION
  Report Type: Spontaneous
  Country: US (occurrence: None)
  Receive Date: 20251009
  Receipt Date: 20251009
  Transmission Date: 20260117
  Serious: Yes (Hospitalization)
  Sender: FDA-CTU
  Company Number: None

PATIENT
  Sex: Female

DRUGS (11)
  1. REVLIMID [Suspect]
     Active Substance: LENALIDOMIDE
     Indication: Plasma cell myeloma in remission
     Dosage: TAKE 1 CAPSULE (15 MG TOTAL) BY MOUTH DAILY FOR 21 DOSES, FOLLOWED BY A 7 DAY REST PERIOD?
     Route: 048
     Dates: start: 20250911
  2. ACYCLOVIR TAB 800MG [Concomitant]
  3. CALCIUM GARB CHW 500MG [Concomitant]
  4. CALCIUM CIT/TAB VIT D [Concomitant]
  5. CETIRIZINE HCL [Concomitant]
     Active Substance: CETIRIZINE HYDROCHLORIDE
  6. CHANTIX TAB1MG [Concomitant]
  7. DEXAMETHASONE [Concomitant]
     Active Substance: DEXAMETHASONE
  8. IBUPROFEN [Concomitant]
     Active Substance: IBUPROFEN
  9. KP VITAMIN D [Concomitant]
  10. METFORMIN TAB 500MG ER [Concomitant]
  11. MIDODRINE TAB5MG [Concomitant]

REACTIONS (1)
  - Dehydration [None]
